FAERS Safety Report 9296215 (Version 1)
Quarter: 2013Q2

REPORT INFORMATION
  Report Type: Spontaneous
  Country: US (occurrence: US)
  Receive Date: 20130517
  Receipt Date: 20130517
  Transmission Date: 20140414
  Serious: Yes (Other)
  Sender: FDA-Public Use
  Company Number: US-PFIZER INC-2013151563

PATIENT
  Age: 51 Year
  Sex: Female
  Weight: 31.75 kg

DRUGS (2)
  1. LYRICA [Suspect]
     Indication: FIBROMYALGIA
     Dosage: UNK, 3X/DAY
     Route: 048
  2. RELPAX [Suspect]
     Indication: MIGRAINE
     Dosage: UNK, AS NEEDED
     Route: 048

REACTIONS (4)
  - Tachycardia [Unknown]
  - Oxygen saturation abnormal [Unknown]
  - Pyrexia [Unknown]
  - Blood potassium decreased [Unknown]
